FAERS Safety Report 20113343 (Version 1)
Quarter: 2021Q4

REPORT INFORMATION
  Report Type: Spontaneous
  Country: US (occurrence: None)
  Receive Date: 20211124
  Receipt Date: 20211124
  Transmission Date: 20220303
  Serious: Yes (Hospitalization, Other)
  Sender: FDA-Public Use
  Company Number: None

PATIENT
  Age: 30 Year
  Sex: Female
  Weight: 94.05 kg

DRUGS (1)
  1. REGEN-COV [Suspect]
     Active Substance: CASIRIVIMAB\IMDEVIMAB
     Indication: SARS-CoV-2 test positive
     Dosage: FREQUENCY : ONCE;?
     Route: 058
     Dates: start: 20211115, end: 20211115

REACTIONS (5)
  - Abortion spontaneous [None]
  - Foetal hypokinesia [None]
  - Exposure during pregnancy [None]
  - Petechiae [None]
  - Pre-eclampsia [None]

NARRATIVE: CASE EVENT DATE: 20211115
